FAERS Safety Report 15786112 (Version 2)
Quarter: 2019Q1

REPORT INFORMATION
  Report Type: Spontaneous
  Country: SK (occurrence: SK)
  Receive Date: 20190103
  Receipt Date: 20190314
  Transmission Date: 20190417
  Serious: Yes (Other)
  Sender: FDA-Public Use
  Company Number: SK-PFIZER INC-2018519561

PATIENT
  Age: 69 Year
  Sex: Male

DRUGS (10)
  1. BETALOK [Concomitant]
     Active Substance: METOPROLOL SUCCINATE
  2. WARFARIN [Concomitant]
     Active Substance: WARFARIN
  3. FURON [FUROSEMIDE] [Concomitant]
  4. LEXAURIN [Concomitant]
     Active Substance: BROMAZEPAM
  5. BOSULIF [Suspect]
     Active Substance: BOSUTINIB MONOHYDRATE
     Indication: CHRONIC MYELOID LEUKAEMIA
     Dosage: 500 MG, 1X/DAY
     Route: 048
     Dates: start: 20181121, end: 20181203
  6. EUTHYROX [Concomitant]
     Active Substance: LEVOTHYROXINE SODIUM
  7. VEROSPIRON [Concomitant]
     Active Substance: SPIRONOLACTONE
  8. ASCORUTIN [Concomitant]
     Active Substance: ASCORBIC ACID\RUTIN
  9. TRITACE [Concomitant]
     Active Substance: RAMIPRIL
     Dosage: UNK
  10. SORTIS [Concomitant]
     Active Substance: ATORVASTATIN

REACTIONS (4)
  - Rash [Recovering/Resolving]
  - Toxic skin eruption [Unknown]
  - Skin reaction [Recovering/Resolving]
  - Pruritus [Recovering/Resolving]

NARRATIVE: CASE EVENT DATE: 20181201
